FAERS Safety Report 12451194 (Version 1)
Quarter: 2016Q2

REPORT INFORMATION
  Report Type: Spontaneous
  Country: FR (occurrence: FR)
  Receive Date: 20160609
  Receipt Date: 20160609
  Transmission Date: 20160815
  Serious: No
  Sender: FDA-Public Use
  Company Number: FR-ELI_LILLY_AND_COMPANY-FR201606000718

PATIENT
  Sex: Female

DRUGS (1)
  1. CYMBALTA [Suspect]
     Active Substance: DULOXETINE HYDROCHLORIDE
     Indication: ANOREXIA NERVOSA
     Dosage: UNK, UNKNOWN
     Route: 065
     Dates: start: 201604

REACTIONS (2)
  - Transaminases increased [Unknown]
  - Off label use [Unknown]
